FAERS Safety Report 7837728 (Version 2)
Quarter: 2013Q2

REPORT INFORMATION
  Report Type: Spontaneous
  Country: US (occurrence: US)
  Receive Date: 20110302
  Receipt Date: 20130624
  Transmission Date: 20140414
  Serious: Yes (Hospitalization, Other)
  Sender: FDA-Public Use
  Company Number: US-PFIZER INC-2009276399

PATIENT
  Age: 9 Year
  Sex: Female
  Weight: 25 kg

DRUGS (7)
  1. DILANTIN [Suspect]
     Indication: CONVULSION
     Dosage: 100 MG, 2X/DAY
     Route: 048
     Dates: start: 199912, end: 19991215
  2. DILANTIN [Suspect]
     Dosage: 100 MG, 3X/DAY
     Route: 048
     Dates: start: 19991224
  3. DILANTIN-125 [Suspect]
     Indication: CONVULSION
     Dosage: 100 MG/4 ML TWICE A DAY
     Route: 048
     Dates: start: 19991216
  4. ATIVAN [Concomitant]
     Indication: CONVULSION
     Dosage: 1 MG, UNK
     Dates: start: 19991224
  5. VALIUM [Concomitant]
     Indication: CONVULSION
     Dosage: UNK
     Dates: start: 19991224
  6. TYLENOL [Concomitant]
     Indication: PAIN
     Dosage: UNK
     Route: 048
     Dates: start: 19991224
  7. DEXAMETHASONE [Concomitant]
     Dosage: 0.75 MG, UNK
     Route: 048
     Dates: start: 19991224

REACTIONS (1)
  - Stevens-Johnson syndrome [Recovering/Resolving]
